FAERS Safety Report 5062471-X (Version None)
Quarter: 2006Q3

REPORT INFORMATION
  Report Type: 
  Country: None (occurrence: None)
  Receive Date: 20060721
  Receipt Date: 20060714
  Transmission Date: 20061208
  Serious: Yes (Hospitalization)
  Sender: FDA-Public Use
  Company Number: 2006-07-0491

PATIENT
  Sex: Male

DRUGS (1)
  1. CELESTAMINE TAB [Suspect]
     Dosage: 3 TAB ORAL
     Route: 048
     Dates: end: 20060712

REACTIONS (3)
  - CONFUSIONAL STATE [None]
  - MEMORY IMPAIRMENT [None]
  - POISONING [None]
